FAERS Safety Report 9469656 (Version 1)
Quarter: 2013Q3

REPORT INFORMATION
  Report Type: Spontaneous
  Country: US (occurrence: None)
  Receive Date: 20130820
  Receipt Date: 20130820
  Transmission Date: 20140515
  Serious: Yes (Death)
  Sender: FDA-Public Use
  Company Number: None

PATIENT
  Age: 56 Year
  Sex: Female

DRUGS (10)
  1. ZYPREXA RELPREVV [Suspect]
     Indication: SCHIZOPHRENIA
     Dosage: ZYPREXA RELPREVV 405 MG IM MONTHLY
     Dates: start: 201302
  2. FANAPT [Concomitant]
  3. SYNTHROID [Concomitant]
  4. INDERAL [Concomitant]
  5. DEPAKOTE [Concomitant]
  6. ATIVAN [Concomitant]
  7. RISPERDAL [Concomitant]
  8. TYLENOL [Concomitant]
  9. ALBUTEROL [Concomitant]
  10. TRAZODONE [Concomitant]

REACTIONS (2)
  - Haemorrhage [None]
  - Pulmonary embolism [None]
